FAERS Safety Report 17358329 (Version 3)
Quarter: 2022Q2

REPORT INFORMATION
  Report Type: Other
  Country: US (occurrence: None)
  Receive Date: 20200201
  Receipt Date: 20220622
  Transmission Date: 20220720
  Serious: Yes (Hospitalization, Other)
  Sender: FDA-Public Use
  Company Number: US-ROCHE-2532877

PATIENT
  Sex: Female
  Weight: 83.1 kg

DRUGS (19)
  1. XOLAIR [Suspect]
     Active Substance: OMALIZUMAB
     Indication: Asthma
     Route: 058
  2. XOLAIR [Suspect]
     Active Substance: OMALIZUMAB
  3. XOLAIR [Suspect]
     Active Substance: OMALIZUMAB
     Route: 058
  4. XOLAIR [Suspect]
     Active Substance: OMALIZUMAB
  5. XOLAIR [Suspect]
     Active Substance: OMALIZUMAB
     Route: 058
  6. XOLAIR [Suspect]
     Active Substance: OMALIZUMAB
  7. ALBUTEROL SULFATE [Concomitant]
     Active Substance: ALBUTEROL SULFATE
     Indication: Wheezing
     Dosage: THERAPY START DATE:02/OCT/2020. INHALE 2 PUFFS EVERY 6 HOURS
     Route: 055
  8. ALBUTEROL SULFATE [Concomitant]
     Active Substance: ALBUTEROL SULFATE
     Indication: Dyspnoea
  9. FEXOFENADINE [Concomitant]
     Active Substance: FEXOFENADINE HYDROCHLORIDE
     Dosage: TAKE 1 TABLET AT BEDTIME THERAPY START DATE:02/OCT/2020
     Route: 048
  10. ALBUTEROL\IPRATROPIUM [Concomitant]
     Active Substance: ALBUTEROL\IPRATROPIUM
     Dosage: THERAPY START DATE:02/OCT/2020
     Route: 055
  11. SINGULAIR [Concomitant]
     Active Substance: MONTELUKAST SODIUM
     Dosage: TAKE 1 TABLET AT BEDTIME THERAPY START DATE:02/OCT/2020
     Route: 048
  12. DICLEGIS [Concomitant]
     Active Substance: DOXYLAMINE SUCCINATE\PYRIDOXINE HYDROCHLORIDE
     Dosage: TAKE ONE TABLET AT BEDTIME THERAPY START DATE:21/AUG/2020
     Route: 048
  13. MEDROL [Concomitant]
     Active Substance: METHYLPREDNISOLONE
     Dosage: THERAPY START DATE:21/AUG/2020
     Route: 048
  14. PROMETHAZINE [Concomitant]
     Active Substance: PROMETHAZINE HYDROCHLORIDE
     Indication: Nausea
     Dosage: THERAPY START DATE:21/AUG/2020
     Route: 048
  15. PROMETHAZINE [Concomitant]
     Active Substance: PROMETHAZINE HYDROCHLORIDE
     Indication: Vomiting
  16. IPRATROPIUM [Concomitant]
     Active Substance: IPRATROPIUM
     Indication: Wheezing
     Route: 055
     Dates: start: 20181226
  17. IPRATROPIUM [Concomitant]
     Active Substance: IPRATROPIUM
     Indication: Dyspnoea
  18. SYMBICORT [Concomitant]
     Active Substance: BUDESONIDE\FORMOTEROL FUMARATE DIHYDRATE
     Dosage: INHALE 2 PUFFS THERAPY START DATE:14/OCT/2020
     Route: 055
  19. FLUTICASONE PROPIONATE [Concomitant]
     Active Substance: FLUTICASONE PROPIONATE
     Dosage: USE 2 SPRAYS INTO EACH NOSTRIL (50MCG/ACTUATION)
     Route: 045

REACTIONS (16)
  - Acute respiratory failure [Unknown]
  - Deep vein thrombosis [Unknown]
  - Stress ulcer [Unknown]
  - Rhinitis allergic [Unknown]
  - Malaise [Unknown]
  - Maternal exposure during pregnancy [Unknown]
  - Urticaria [Unknown]
  - Blood glucose increased [Unknown]
  - Asthma [Unknown]
  - Asthma [Unknown]
  - Urticaria [Unknown]
  - Off label use [Unknown]
  - Rhinitis [Unknown]
  - Vocal cord dysfunction [Unknown]
  - Adverse food reaction [Unknown]
  - Weight increased [Unknown]
